FAERS Safety Report 7338492-0 (Version None)
Quarter: 2011Q1

REPORT INFORMATION
  Report Type: 
  Country: None (occurrence: None)
  Receive Date: 20110308
  Receipt Date: 20110303
  Transmission Date: 20110831
  Serious: Yes (Other)
  Sender: FDA-Public Use
  Company Number: US-PFIZER INC-2011047383

PATIENT
  Sex: Male
  Weight: 126.98 kg

DRUGS (2)
  1. LISINOPRIL [Concomitant]
     Indication: HYPERTENSION
     Dosage: 5 MG, 1X/DAY
  2. RELISTOR [Suspect]
     Indication: CONSTIPATION
     Dosage: 80 MG, UNK
     Dates: start: 20100101, end: 20110201

REACTIONS (6)
  - INJECTION SITE MASS [None]
  - INJECTION SITE INFLAMMATION [None]
  - INJECTION SITE ERYTHEMA [None]
  - ABDOMINAL DISCOMFORT [None]
  - SKIN INFECTION [None]
  - INJECTION SITE PAIN [None]
